FAERS Safety Report 6766392-3 (Version None)
Quarter: 2010Q2

REPORT INFORMATION
  Report Type: 
  Country: None (occurrence: None)
  Receive Date: 20100611
  Receipt Date: 20100603
  Transmission Date: 20101027
  Serious: Yes (Hospitalization, Other)
  Sender: FDA-Public Use
  Company Number: US-AMGEN-QUU267839

PATIENT
  Sex: Male
  Weight: 122.6 kg

DRUGS (8)
  1. ENBREL [Suspect]
     Indication: RHEUMATOID ARTHRITIS
     Route: 058
     Dates: start: 20021219
  2. HYDROXYCHLOROQUINE [Concomitant]
     Route: 048
     Dates: start: 20071204
  3. LASIX [Concomitant]
  4. ALDACTONE [Concomitant]
  5. TOPROL-XL [Concomitant]
  6. DIOVAN [Concomitant]
  7. SODIUM CHLORIDE [Concomitant]
     Route: 041
     Dates: start: 20071105, end: 20071105
  8. VERSED [Concomitant]
     Route: 042
     Dates: start: 20071105, end: 20071105

REACTIONS (9)
  - ARTHRALGIA [None]
  - ARTHRITIS [None]
  - ATRIAL FIBRILLATION [None]
  - CARDIAC FAILURE CONGESTIVE [None]
  - IMPLANTABLE DEFIBRILLATOR INSERTION [None]
  - PNEUMONIA [None]
  - SLEEP APNOEA SYNDROME [None]
  - TOOTH FRACTURE [None]
  - TOOTH INFECTION [None]
